FAERS Safety Report 20779092 (Version 1)
Quarter: 2022Q2

REPORT INFORMATION
  Report Type: Spontaneous
  Country: US (occurrence: None)
  Receive Date: 20220503
  Receipt Date: 20220503
  Transmission Date: 20220720
  Serious: Yes (Other)
  Sender: FDA-Public Use
  Company Number: None

PATIENT
  Age: 48 Year
  Sex: Female
  Weight: 65.25 kg

DRUGS (1)
  1. DOXYCYCLINE HYCLATE [Suspect]
     Active Substance: DOXYCYCLINE HYCLATE
     Indication: Urticaria
     Dosage: FREQUENCY : TWICE A DAY;?
     Route: 048
     Dates: start: 20220412, end: 20220424

REACTIONS (5)
  - Burning sensation [None]
  - Pain [None]
  - Pruritus [None]
  - Gait disturbance [None]
  - Insomnia [None]

NARRATIVE: CASE EVENT DATE: 20220424
